FAERS Safety Report 11322873 (Version 1)
Quarter: 2015Q3

REPORT INFORMATION
  Report Type: Spontaneous
  Country: US (occurrence: None)
  Receive Date: 20150729
  Receipt Date: 20150729
  Transmission Date: 20151125
  Serious: Yes (Disabling)
  Sender: FDA-Public Use
  Company Number: None

PATIENT
  Age: 42 Year
  Sex: Female
  Weight: 75.75 kg

DRUGS (8)
  1. NUERONTIN [Concomitant]
  2. BUMEX [Concomitant]
     Active Substance: BUMETANIDE
  3. LORITAB [Concomitant]
  4. LISINOPRIL. [Concomitant]
     Active Substance: LISINOPRIL
  5. ALOPURINOL [Concomitant]
     Active Substance: ALLOPURINOL
  6. LEVAQUIN [Suspect]
     Active Substance: LEVOFLOXACIN
     Indication: CYST
     Route: 048
  7. VITAMIN D [Concomitant]
     Active Substance: CHOLECALCIFEROL
  8. AMYTRIPTILINE [Concomitant]

REACTIONS (3)
  - Gait disturbance [None]
  - Pain [None]
  - Abasia [None]
